FAERS Safety Report 6640333-1 (Version None)
Quarter: 2010Q1

REPORT INFORMATION
  Report Type: 
  Country: None (occurrence: None)
  Receive Date: 20100302
  Receipt Date: 20091130
  Transmission Date: 20100710
  Serious: Yes (Hospitalization)
  Sender: FDA-Public Use
  Company Number: 2009286409

PATIENT
  Age: 89 Year
  Sex: Female
  Weight: 54 kg

DRUGS (2)
  1. TOVIAZ [Suspect]
     Indication: URINARY INCONTINENCE
     Dosage: 4 MG, 1X/DAY, ORAL
     Route: 048
     Dates: start: 20090501
  2. NEURONTIN [Concomitant]

REACTIONS (2)
  - INTENTIONAL DRUG MISUSE [None]
  - URINARY RETENTION [None]
